FAERS Safety Report 19419555 (Version 1)
Quarter: 2021Q2

REPORT INFORMATION
  Report Type: Spontaneous
  Country: US (occurrence: US)
  Receive Date: 20210615
  Receipt Date: 20210615
  Transmission Date: 20210717
  Serious: Yes (Other)
  Sender: FDA-Public Use
  Company Number: US-PFIZER INC-2020026342

PATIENT
  Age: 63 Year
  Sex: Female

DRUGS (2)
  1. PREMARIN [Suspect]
     Active Substance: ESTROGENS, CONJUGATED
     Dosage: 0.5 DF, AS NEEDED (1/2 APPLICATION, THRICE A WEEK ON M/ W/ F (MONDAY, WEDNESDAY AND FRIDAY) HS PRN)
     Route: 067
  2. PREMARIN [Suspect]
     Active Substance: ESTROGENS, CONJUGATED
     Indication: ATROPHIC VULVOVAGINITIS
     Dosage: 1 DF, AS NEEDED (1 APPLICATION, DAILY AT NIGHT (HS) AS NEEDED (PRN))
     Route: 067

REACTIONS (3)
  - Bladder spasm [Recovered/Resolved]
  - Diabetes mellitus [Unknown]
  - Off label use [Unknown]
